FAERS Safety Report 15767573 (Version 2)
Quarter: 2019Q3

REPORT INFORMATION
  Report Type: Report from Study
  Country: US (occurrence: US)
  Receive Date: 20181227
  Receipt Date: 20190716
  Transmission Date: 20191004
  Serious: Yes (Hospitalization, Other)
  Sender: FDA-Public Use
  Company Number: US-JNJFOC-20181121733

PATIENT
  Age: 72 Year
  Sex: Male

DRUGS (14)
  1. IMBRUVICA [Suspect]
     Active Substance: IBRUTINIB
     Indication: CHRONIC LYMPHOCYTIC LEUKAEMIA
     Route: 048
     Dates: start: 20180612
  2. MUCINEX [Concomitant]
     Active Substance: GUAIFENESIN
  3. ABILIFY [Concomitant]
     Active Substance: ARIPIPRAZOLE
  4. ACYCLOVIR                          /00587301/ [Concomitant]
     Active Substance: ACYCLOVIR
  5. ALLOPURINOL. [Concomitant]
     Active Substance: ALLOPURINOL
  6. PREDNISONE. [Concomitant]
     Active Substance: PREDNISONE
  7. INCRUSE ELLIPTA [Concomitant]
     Active Substance: UMECLIDINIUM BROMIDE
  8. BUDESONIDE W/FORMOTEROL FUMARATE [Concomitant]
     Active Substance: BUDESONIDE\FORMOTEROL FUMARATE
  9. LEVOFLOXACIN. [Concomitant]
     Active Substance: LEVOFLOXACIN
  10. DEXAMETHASONE. [Concomitant]
     Active Substance: DEXAMETHASONE
  11. IMBRUVICA [Suspect]
     Active Substance: IBRUTINIB
     Route: 048
     Dates: start: 20180822, end: 20190422
  12. ALBUTEROL HFA [Concomitant]
     Active Substance: ALBUTEROL SULFATE
  13. IPRATROPIUM/ALBUTEROL [Concomitant]
     Active Substance: ALBUTEROL\IPRATROPIUM
  14. CLONAZEPAM. [Concomitant]
     Active Substance: CLONAZEPAM

REACTIONS (8)
  - Neuropathy peripheral [Recovered/Resolved]
  - White blood cell count abnormal [Unknown]
  - Off label use [Unknown]
  - Pyrexia [Recovered/Resolved]
  - Bronchitis [Recovered/Resolved]
  - Dizziness [Recovered/Resolved]
  - Incorrect dose administered [Unknown]
  - Chronic obstructive pulmonary disease [Recovered/Resolved]

NARRATIVE: CASE EVENT DATE: 20180822
